FAERS Safety Report 5925283-8 (Version None)
Quarter: 2008Q4

REPORT INFORMATION
  Report Type: 
  Country: None (occurrence: None)
  Receive Date: 20081021
  Receipt Date: 20081016
  Transmission Date: 20090506
  Serious: Yes (Hospitalization, Other)
  Sender: FDA-Public Use
  Company Number: IN-BRISTOL-MYERS SQUIBB COMPANY-14280580

PATIENT
  Age: 34 Year
  Sex: Male

DRUGS (4)
  1. SPRYCEL [Suspect]
     Indication: CHRONIC MYELOID LEUKAEMIA
     Dosage: 5FEB-11APR,100MG.18APR-11MAY,100MG;12MAY-27MAY,80 MG/D;17JUN-25JUN08,60MG/D.
     Route: 048
     Dates: start: 20080205, end: 20080625
  2. LEVOFLOXACIN [Concomitant]
     Dates: start: 20080716
  3. AUGMENTIN '125' [Concomitant]
     Dates: start: 20080716
  4. NEUPOGEN [Concomitant]

REACTIONS (5)
  - FEBRILE NEUTROPENIA [None]
  - GRAND MAL CONVULSION [None]
  - PYREXIA [None]
  - RESPIRATORY DISTRESS [None]
  - STATUS EPILEPTICUS [None]
